FAERS Safety Report 9246696 (Version 1)
Quarter: 2013Q2

REPORT INFORMATION
  Report Type: Report from Study
  Country: US (occurrence: US)
  Receive Date: 20130422
  Receipt Date: 20130422
  Transmission Date: 20140414
  Serious: Yes (Hospitalization)
  Sender: FDA-Public Use
  Company Number: US-ROCHE-1216799

PATIENT
  Sex: Male

DRUGS (5)
  1. XELODA [Suspect]
     Indication: COLON CANCER
     Route: 048
  2. XELODA [Suspect]
     Route: 048
  3. XELODA [Suspect]
     Dosage: IN THE EVENING
     Route: 048
  4. XELODA [Suspect]
     Dosage: IN THE EVENING
     Route: 048
  5. TAMSULOSIN [Concomitant]
     Indication: DYSURIA
     Route: 048

REACTIONS (1)
  - Hernia [Unknown]
